FAERS Safety Report 5534746-9 (Version None)
Quarter: 2007Q4

REPORT INFORMATION
  Report Type: 
  Country: None (occurrence: None)
  Receive Date: 20071205
  Receipt Date: 20071126
  Transmission Date: 20080405
  Serious: Yes (Hospitalization, Congenital Anomaly)
  Sender: FDA-Public Use
  Company Number: US-ABBOTT-07P-163-0426908-00

PATIENT
  Sex: Male

DRUGS (1)
  1. VALPROIC ACID [Suspect]
     Indication: DRUG EXPOSURE DURING PREGNANCY
     Route: 064

REACTIONS (20)
  - ALPHA 1 FOETOPROTEIN [None]
  - ASTIGMATISM [None]
  - CONGENITAL EYE DISORDER [None]
  - CONGENITAL NOSE MALFORMATION [None]
  - CONGENITAL ORAL MALFORMATION [None]
  - CRYPTORCHISM [None]
  - DEVELOPMENTAL DELAY [None]
  - DRUG EXPOSURE DURING PREGNANCY [None]
  - DYSMORPHISM [None]
  - FOETAL ANTICONVULSANT SYNDROME [None]
  - GAIT DISTURBANCE [None]
  - HYPOTONIA [None]
  - LOW SET EARS [None]
  - MACRODACTYLY [None]
  - PECTUS EXCAVATUM [None]
  - PREMATURE CLOSURE OF CRANIAL SUTURES [None]
  - ROTAVIRUS INFECTION [None]
  - SEPSIS [None]
  - SKULL MALFORMATION [None]
  - SPEECH DISORDER DEVELOPMENTAL [None]
